FAERS Safety Report 10420730 (Version 1)
Quarter: 2014Q3

REPORT INFORMATION
  Report Type: Spontaneous
  Country: US (occurrence: None)
  Receive Date: 20140708
  Receipt Date: 20140708
  Transmission Date: 20150326
  Serious: Yes (Other)
  Sender: FDA-Public Use
  Company Number: 1333591-4

PATIENT
  Age: 12 Year
  Sex: Female
  Weight: 29.48 kg

DRUGS (3)
  1. NIX [Suspect]
     Active Substance: PERMETHRIN
     Indication: LICE INFESTATION
     Route: 061
     Dates: start: 20140121
  2. REMICADE [Concomitant]
     Active Substance: INFLIXIMAB
  3. UNSPECIFIED BRONCHODIALATOR [Concomitant]

REACTIONS (3)
  - Respiratory tract congestion [None]
  - Cough [None]
  - Eye irritation [None]

NARRATIVE: CASE EVENT DATE: 20140121
